FAERS Safety Report 15929114 (Version 1)
Quarter: 2019Q1

REPORT INFORMATION
  Report Type: Spontaneous
  Country: US (occurrence: US)
  Receive Date: 20190206
  Receipt Date: 20190206
  Transmission Date: 20190417
  Serious: Yes (Other)
  Sender: FDA-Public Use
  Company Number: US-ASTRAZENECA-2019SE08583

PATIENT
  Age: 786 Month
  Sex: Female
  Weight: 88.5 kg

DRUGS (8)
  1. SYMBICORT [Suspect]
     Active Substance: BUDESONIDE\FORMOTEROL FUMARATE DIHYDRATE
     Indication: ASTHMA
     Dosage: ONE INHALATION TWICE A DAY
     Route: 055
  2. OXYBUTIN [Concomitant]
     Active Substance: OXYBUTYNIN
     Route: 048
  3. METOPROLOL SUCCINATE. [Suspect]
     Active Substance: METOPROLOL SUCCINATE
     Indication: HYPERTENSION
     Route: 048
  4. ARIMIDEX [Suspect]
     Active Substance: ANASTROZOLE
     Indication: BREAST CANCER FEMALE
     Route: 048
  5. TIMOLOL. [Concomitant]
     Active Substance: TIMOLOL
     Indication: EYE DISORDER
     Route: 047
  6. SYMBICORT [Suspect]
     Active Substance: BUDESONIDE\FORMOTEROL FUMARATE DIHYDRATE
     Indication: ASTHMA
     Dosage: 80/4.5 MCG TWO RESPIRATORY INHALATIONS TWICE A DAY
     Route: 055
     Dates: start: 201805
  7. SYMBICORT [Suspect]
     Active Substance: BUDESONIDE\FORMOTEROL FUMARATE DIHYDRATE
     Indication: COUGH
     Dosage: 80/4.5 MCG TWO RESPIRATORY INHALATIONS TWICE A DAY
     Route: 055
     Dates: start: 201805
  8. SYMBICORT [Suspect]
     Active Substance: BUDESONIDE\FORMOTEROL FUMARATE DIHYDRATE
     Indication: COUGH
     Dosage: ONE INHALATION TWICE A DAY
     Route: 055

REACTIONS (12)
  - Bronchitis [Recovered/Resolved]
  - Laryngitis [Recovered/Resolved]
  - Malaise [Recovered/Resolved]
  - Therapy cessation [Recovered/Resolved]
  - Off label use [Not Recovered/Not Resolved]
  - Knee deformity [Unknown]
  - Wrong technique in product usage process [Unknown]
  - Intentional product misuse [Unknown]
  - Product use issue [Not Recovered/Not Resolved]
  - Tendon rupture [Recovering/Resolving]
  - Asthenia [Recovered/Resolved]
  - Breast cancer female [Recovered/Resolved]

NARRATIVE: CASE EVENT DATE: 201811
